FAERS Safety Report 4622259-8 (Version None)
Quarter: 2005Q1

REPORT INFORMATION
  Report Type: 
  Country: None (occurrence: None)
  Receive Date: 20050324
  Receipt Date: 20050324
  Transmission Date: 20050727
  Serious: No
  Sender: FDA-Public Use
  Company Number: None

PATIENT
  Sex: Female
  Weight: 55 kg

DRUGS (1)
  1. PENTOSTAIN [Suspect]
     Dosage: 4MG/M2 INTRAVENOUSLY EVERY 2 WEEKS.
     Route: 042
     Dates: start: 20050202

REACTIONS (9)
  - ALANINE AMINOTRANSFERASE INCREASED [None]
  - ASPARTATE AMINOTRANSFERASE INCREASED [None]
  - ASTHENIA [None]
  - BLOOD ALKALINE PHOSPHATASE INCREASED [None]
  - DEHYDRATION [None]
  - GRAFT VERSUS HOST DISEASE [None]
  - HYPOTENSION [None]
  - MALNUTRITION [None]
  - ORAL INTAKE REDUCED [None]
